FAERS Safety Report 8186813-1 (Version None)
Quarter: 2012Q1

REPORT INFORMATION
  Report Type: 
  Country: None (occurrence: None)
  Receive Date: 20120306
  Receipt Date: 20120223
  Transmission Date: 20120608
  Serious: Yes (Disabling, Other)
  Sender: FDA-Public Use
  Company Number: FR-BRISTOL-MYERS SQUIBB COMPANY-16263923

PATIENT
  Age: 41 Year
  Sex: Female
  Weight: 54 kg

DRUGS (5)
  1. IMOVANE [Concomitant]
     Dosage: STARTED MORE THAN A YEAR
  2. ESCITALOPRAM OXALATE [Concomitant]
     Dosage: STARTED MORE THAN A YEAR
  3. HEPT-A-MYL [Concomitant]
     Dosage: STARTED MORE THAN A YEAR
  4. ACETAMINOPHEN W/ CODEINE [Interacting]
     Dosage: ALSO AS CONMED PARACETAMOL:500MG, PHOSPHATE 30MG
  5. ABILIFY [Suspect]
     Indication: MANIA
     Route: 048
     Dates: start: 20111125, end: 20111128

REACTIONS (5)
  - MUSCLE SPASMS [None]
  - GAIT DISTURBANCE [None]
  - MYALGIA [None]
  - DRUG INTERACTION [None]
  - PAIN IN EXTREMITY [None]
